FAERS Safety Report 15602868 (Version 2)
Quarter: 2018Q4

REPORT INFORMATION
  Report Type: Spontaneous
  Country: JP (occurrence: JP)
  Receive Date: 20181109
  Receipt Date: 20181130
  Transmission Date: 20190205
  Serious: Yes (Hospitalization)
  Sender: FDA-Public Use
  Company Number: JP-EISAI MEDICAL RESEARCH-EC-2018-047434

PATIENT
  Age: 49 Year
  Sex: Female

DRUGS (3)
  1. PHENOBAL [Concomitant]
     Active Substance: PHENOBARBITAL
     Indication: TONIC CONVULSION
     Route: 065
     Dates: start: 20181029
  2. FYCOMPA [Suspect]
     Active Substance: PERAMPANEL
     Indication: TONIC CONVULSION
     Route: 048
     Dates: start: 20181030, end: 20181101
  3. E KEPPRA [Suspect]
     Active Substance: LEVETIRACETAM
     Indication: TONIC CONVULSION
     Route: 048
     Dates: start: 20181029, end: 20181101

REACTIONS (1)
  - Rhabdomyolysis [Recovered/Resolved]

NARRATIVE: CASE EVENT DATE: 20181101
